FAERS Safety Report 10104718 (Version 2)
Quarter: 2014Q2

REPORT INFORMATION
  Report Type: Spontaneous
  Country: CO (occurrence: CO)
  Receive Date: 20140424
  Receipt Date: 20140424
  Transmission Date: 20141212
  Serious: Yes (Death, Life-Threatening, Hospitalization)
  Sender: FDA-Public Use
  Company Number: CO-ASTELLAS-2013US009197

PATIENT
  Age: 59 Year
  Sex: Female

DRUGS (4)
  1. PROGRAF XL [Suspect]
     Indication: LIVER TRANSPLANT
     Route: 048
     Dates: start: 20070310
  2. PREDNISOLONE [Concomitant]
     Indication: PRODUCT USED FOR UNKNOWN INDICATION
     Route: 065
  3. MYCOPHENOLATE [Concomitant]
     Indication: PRODUCT USED FOR UNKNOWN INDICATION
     Route: 065
  4. URSACOL [Concomitant]
     Indication: PRODUCT USED FOR UNKNOWN INDICATION
     Route: 065

REACTIONS (3)
  - Transplant rejection [Fatal]
  - Coma [Unknown]
  - Lung infection [Unknown]
